FAERS Safety Report 10283584 (Version 3)
Quarter: 2014Q3

REPORT INFORMATION
  Report Type: Report from Study
  Country: DE (occurrence: DE)
  Receive Date: 20140708
  Receipt Date: 20140806
  Transmission Date: 20150326
  Serious: Yes (Death)
  Sender: FDA-Public Use
  Company Number: DE-ABBVIE-13P-062-1150700-00

PATIENT
  Age: 72 Year
  Sex: Male

DRUGS (1)
  1. TRENANTONE [Suspect]
     Active Substance: LEUPROLIDE ACETATE
     Indication: PROSTATE CANCER
     Route: 058
     Dates: start: 20121106, end: 20140407

REACTIONS (4)
  - Hydronephrosis [Unknown]
  - Prostate cancer [Fatal]
  - Blood alkaline phosphatase increased [Unknown]
  - Bile duct obstruction [Fatal]

NARRATIVE: CASE EVENT DATE: 2013
